FAERS Safety Report 5808285-1 (Version None)
Quarter: 2008Q3

REPORT INFORMATION
  Report Type: 
  Country: None (occurrence: None)
  Receive Date: 20080710
  Receipt Date: 20080624
  Transmission Date: 20090109
  Serious: Yes (Other)
  Sender: FDA-Public Use
  Company Number: 2006097740

PATIENT
  Sex: Female

DRUGS (6)
  1. MACUGEN [Suspect]
     Indication: MACULAR DEGENERATION
     Dosage: (1 IN 6 WK), OTHER
     Route: 050
     Dates: start: 20050901, end: 20060101
  2. LYRICA [Suspect]
     Indication: DIABETIC NEUROPATHY
     Dosage: (3 IN 1 D),
     Dates: start: 20060327
  3. ACETYLSALICYLIC ACID SRT [Suspect]
     Indication: DRUG USE FOR UNKNOWN INDICATION
     Dates: end: 20060101
  4. SYNTHROID [Concomitant]
  5. DETROL [Concomitant]
  6. AMARYL [Concomitant]

REACTIONS (8)
  - CARDIAC OPERATION [None]
  - DIABETIC NEUROPATHY [None]
  - EYE HAEMORRHAGE [None]
  - EYE SWELLING [None]
  - INCREASED TENDENCY TO BRUISE [None]
  - INSOMNIA [None]
  - MENTAL IMPAIRMENT [None]
  - VISUAL IMPAIRMENT [None]
